FAERS Safety Report 11861584 (Version 2)
Quarter: 2016Q2

REPORT INFORMATION
  Report Type: Spontaneous
  Country: GR (occurrence: GR)
  Receive Date: 20151222
  Receipt Date: 20160429
  Transmission Date: 20160815
  Serious: Yes (Hospitalization, Other)
  Sender: FDA-Public Use
  Company Number: GR-JNJFOC-20151217230

PATIENT
  Sex: Male

DRUGS (4)
  1. PROSOLVIN [Concomitant]
     Route: 065
  2. STELARA [Suspect]
     Active Substance: USTEKINUMAB
     Indication: PSORIASIS
     Route: 058
     Dates: start: 20120123
  3. XARELTO [Concomitant]
     Active Substance: RIVAROXABAN
     Route: 065
  4. GLOPISINE [Concomitant]
     Route: 065

REACTIONS (1)
  - Atrial fibrillation [Not Recovered/Not Resolved]
